FAERS Safety Report 4818068-7 (Version None)
Quarter: 2005Q4

REPORT INFORMATION
  Report Type: 
  Country: None (occurrence: None)
  Receive Date: 20051102
  Receipt Date: 20050812
  Transmission Date: 20060501
  Serious: Yes (Other)
  Sender: FDA-Public Use
  Company Number: CHWYE910116AUG05

PATIENT
  Age: 55 Year
  Sex: Male
  Weight: 88 kg

DRUGS (4)
  1. ENBREL [Suspect]
     Indication: ANKYLOSING SPONDYLITIS
     Route: 058
     Dates: start: 20050301, end: 20050701
  2. CELEBREX [Concomitant]
     Indication: ANKYLOSING SPONDYLITIS
     Route: 048
     Dates: start: 20041001
  3. TOREM [Concomitant]
     Indication: HYPERTENSION
     Route: 048
  4. CREON [Concomitant]
     Indication: GASTROINTESTINAL DISORDER
     Dosage: UNKNOWN
     Route: 048

REACTIONS (1)
  - ERYTHEMA MULTIFORME [None]
